FAERS Safety Report 10272196 (Version 1)
Quarter: 2014Q3

REPORT INFORMATION
  Report Type: Other
  Country: DE (occurrence: DE)
  Receive Date: 20140702
  Receipt Date: 20140702
  Transmission Date: 20150326
  Serious: Yes (Congenital Anomaly)
  Sender: FDA-Public Use
  Company Number: DE-SUN PHARMACEUTICAL INDUSTRIES LTD-2014SUN01434

PATIENT
  Age: 1 Day
  Sex: Male
  Weight: 2.8 kg

DRUGS (2)
  1. OLANZAPINE 5 MG TABLETS [Suspect]
     Active Substance: OLANZAPINE
     Indication: ANXIETY DISORDER
     Dosage: 5 MG, QD
     Route: 064
     Dates: start: 20120803, end: 20130424
  2. CEFUROXIM [Concomitant]
     Active Substance: CEFUROXIME
     Indication: INFECTION PROPHYLAXIS
     Route: 064

REACTIONS (1)
  - Hypospadias [Unknown]

NARRATIVE: CASE EVENT DATE: 20130424
